FAERS Safety Report 6167041-8 (Version None)
Quarter: 2009Q2

REPORT INFORMATION
  Report Type: 
  Country: None (occurrence: None)
  Receive Date: 20090424
  Receipt Date: 20090414
  Transmission Date: 20091009
  Serious: Yes (Other)
  Sender: FDA-Public Use
  Company Number: US-PFIZER INC-2009198355

PATIENT
  Sex: Male

DRUGS (2)
  1. LIPITOR [Suspect]
     Dosage: UNK
  2. VITAMIN B COMPLEX CAP [Suspect]
     Dosage: UNK

REACTIONS (3)
  - BLOOD CHOLESTEROL ABNORMAL [None]
  - FLUSHING [None]
  - MACULAR DEGENERATION [None]
